FAERS Safety Report 7656004-9 (Version None)
Quarter: 2011Q3

REPORT INFORMATION
  Report Type: 
  Country: None (occurrence: None)
  Receive Date: 20110801
  Receipt Date: 20110712
  Transmission Date: 20111222
  Serious: Yes (Hospitalization)
  Sender: FDA-Public Use
  Company Number: HK-005788

PATIENT
  Age: 42 Year
  Sex: Female

DRUGS (4)
  1. PROGESTERONE [Suspect]
     Indication: IN VITRO FERTILISATION
     Route: 067
  2. CHORIONIC GONADOTROPIN [Suspect]
     Indication: IN VITRO FERTILISATION
     Route: 030
  3. FOLLICLE STIMULATING HORMONE, RECOMBINANT (FOLLICLE STIMULATING HORMON [Suspect]
     Indication: IN VITRO FERTILISATION
     Dosage: 450 IU
  4. GONADOTROPIN RELEASING HORMONE (GNRH) [Suspect]
     Indication: IN VITRO FERTILISATION

REACTIONS (8)
  - OLIGURIA [None]
  - OVARIAN ENLARGEMENT [None]
  - ABORTION INDUCED [None]
  - PREGNANCY [None]
  - MATERNAL EXPOSURE BEFORE PREGNANCY [None]
  - OVARIAN HYPERSTIMULATION SYNDROME [None]
  - CEREBRAL VENOUS THROMBOSIS [None]
  - ASCITES [None]
